FAERS Safety Report 16039141 (Version 2)
Quarter: 2019Q2

REPORT INFORMATION
  Report Type: Other
  Country: RO (occurrence: RO)
  Receive Date: 20190306
  Receipt Date: 20190416
  Transmission Date: 20190711
  Serious: Yes (Hospitalization, Other)
  Sender: FDA-Public Use
  Company Number: RO-APOTEX-2019AP008790

PATIENT
  Age: 80 Year
  Sex: Male

DRUGS (20)
  1. LERCANIDIPINE [Suspect]
     Active Substance: LERCANIDIPINE
     Indication: HYPERTENSION
     Dosage: 10 MG, QD, 10 MILLIGRAM, DAILY
     Route: 065
     Dates: start: 2012
  2. LERCANIDIPINE [Suspect]
     Active Substance: LERCANIDIPINE
     Dosage: 10 MILLIGRAM, DAILY,1 MG, QD
     Route: 065
  3. ROSUVASTATIN. [Suspect]
     Active Substance: ROSUVASTATIN
     Indication: CORONARY ARTERY DISEASE
     Dosage: 20 MG, QD, 20 MILLIGRAM, DAILY
     Route: 048
     Dates: start: 2016
  4. CARBIDOPA. [Suspect]
     Active Substance: CARBIDOPA
     Indication: PARKINSON^S DISEASE
     Dosage: 25 MG,250 MG/ 25 MG (250 MG/ 25 MG, 1 IN 1 D)
     Route: 065
     Dates: start: 2017
  5. LEVODOPA/CARBIDOPA [Suspect]
     Active Substance: CARBIDOPA\LEVODOPA
     Indication: PARKINSON^S DISEASE
     Dosage: 250 MG, QD
     Route: 065
     Dates: start: 2017
  6. RASAGILINE. [Concomitant]
     Active Substance: RASAGILINE
     Indication: HYPERTENSION
     Dosage: UNK
     Route: 065
  7. BISOPROLOL [Suspect]
     Active Substance: BISOPROLOL
     Indication: CORONARY ARTERY DISEASE
  8. CLOPIDOGREL [Suspect]
     Active Substance: CLOPIDOGREL BISULFATE
     Indication: CORONARY ARTERY DISEASE
     Dosage: 75 MG, QD, 75 MILLIGRAM, DAILY
     Route: 048
     Dates: start: 2016
  9. RIVAROXABAN [Suspect]
     Active Substance: RIVAROXABAN
     Indication: PRODUCT USED FOR UNKNOWN INDICATION
     Dosage: 20 MG, QD, 20 MILLIGRAM, DAILY
     Route: 065
     Dates: start: 2016
  10. BISOPROLOL [Suspect]
     Active Substance: BISOPROLOL
     Indication: HYPERTENSION
     Dosage: 5 MG, QD, 5 MILLIGRAM, DAILY
     Route: 048
     Dates: start: 2016
  11. OMEPRAZOLE. [Concomitant]
     Active Substance: OMEPRAZOLE
     Indication: PRODUCT USED FOR UNKNOWN INDICATION
     Dosage: 40 MG, UNK., 40 MILLIGRAM, DAILY
     Route: 065
  12. RAMIPRIL. [Suspect]
     Active Substance: RAMIPRIL
     Indication: CORONARY ARTERY DISEASE
     Dosage: 5 MG, QD, 5 MILLIGRAM, DAILY
     Route: 048
     Dates: start: 2016
  13. LEVODOPA/CARBIDOPA [Suspect]
     Active Substance: CARBIDOPA\LEVODOPA
     Dosage: 275 MG, QD
     Route: 065
  14. LEVODOPA [Suspect]
     Active Substance: LEVODOPA
     Indication: PARKINSON^S DISEASE
     Dosage: 250 MG,250 MG/ 25 MG (250 MG/ 25 MG, 1 IN 1 D)
     Route: 065
     Dates: start: 2017
  15. ROSUVASTATIN. [Concomitant]
     Active Substance: ROSUVASTATIN
     Indication: HYPERTENSION
     Dosage: 20 MG, QD
     Route: 065
     Dates: start: 2016
  16. RASAGILINE. [Suspect]
     Active Substance: RASAGILINE
     Indication: PARKINSON^S DISEASE
     Dosage: 1 MG, QD, 1 MILLIGRAM, DAILY
     Route: 048
     Dates: start: 2017
  17. CANDESARTAN. [Suspect]
     Active Substance: CANDESARTAN
     Indication: HYPERTENSION
     Dosage: 16 MG, QD, 16 MG, PER DAY
     Route: 065
     Dates: start: 2012
  18. RAMIPRIL. [Suspect]
     Active Substance: RAMIPRIL
     Indication: HYPERTENSION
  19. AMIODARONE [Suspect]
     Active Substance: AMIODARONE
     Indication: ATRIAL FIBRILLATION
     Dosage: UNK
     Route: 065
     Dates: start: 2015
  20. ROSUVASTATIN. [Concomitant]
     Active Substance: ROSUVASTATIN
     Indication: ACUTE CORONARY SYNDROME
     Dosage: 10 MG, QD
     Route: 065

REACTIONS (6)
  - Presyncope [Recovered/Resolved]
  - Orthostatic hypotension [Recovered/Resolved]
  - Supine hypertension [Recovering/Resolving]
  - Intermittent claudication [Unknown]
  - Syncope [Recovered/Resolved with Sequelae]
  - Dizziness [Recovered/Resolved]

NARRATIVE: CASE EVENT DATE: 2017
